FAERS Safety Report 4714127-8 (Version None)
Quarter: 2005Q2

REPORT INFORMATION
  Report Type: 
  Country: None (occurrence: None)
  Receive Date: 20050630
  Receipt Date: 20040915
  Transmission Date: 20051028
  Serious: Yes (Hospitalization)
  Sender: FDA-Public Use
  Company Number: 2004100001

PATIENT
  Sex: Male

DRUGS (3)
  1. SOMA [Suspect]
     Dosage: PO
     Route: 048
     Dates: end: 20040915
  2. OXYCODONE HCL [Concomitant]
  3. CLONAZEPAM [Concomitant]

REACTIONS (2)
  - OVERDOSE [None]
  - ROAD TRAFFIC ACCIDENT [None]
